FAERS Safety Report 6004190-9 (Version None)
Quarter: 2008Q4

REPORT INFORMATION
  Report Type: 
  Country: None (occurrence: None)
  Receive Date: 20081212
  Receipt Date: 20081127
  Transmission Date: 20090506
  Serious: Yes (Disabling, Other)
  Sender: FDA-Public Use
  Company Number: 2008AL012212

PATIENT
  Age: 58 Year
  Sex: Female

DRUGS (6)
  1. ACYCLOVIR [Suspect]
     Indication: ORAL HERPES
     Dosage: 4000 MG; QD; PO
     Route: 048
     Dates: start: 20080828, end: 20080908
  2. ACETAMINOPHEN W/ CODEINE [Concomitant]
  3. ATENOLOL [Concomitant]
  4. BENDROFLUMETHIAZIDE [Concomitant]
  5. AMITRIPTYLINE [Concomitant]
  6. OESTRADIOL [Concomitant]

REACTIONS (4)
  - MALAISE [None]
  - OEDEMA [None]
  - PAIN [None]
  - THIRST [None]
